FAERS Safety Report 5021671-5 (Version None)
Quarter: 2006Q2

REPORT INFORMATION
  Report Type: 
  Country: None (occurrence: None)
  Receive Date: 20060605
  Receipt Date: 20060519
  Transmission Date: 20061013
  Serious: Yes (Other)
  Sender: FDA-Public Use
  Company Number: CHPA2006US03864

PATIENT
  Sex: Male

DRUGS (1)
  1. 4 WAY FAST ACTING NASAL SPRAY(NCH)(PHENYLEPHRINE) NASAL SPRAY [Suspect]

REACTIONS (5)
  - DEVICE FAILURE [None]
  - DRUG ABUSER [None]
  - DRUG DEPENDENCE [None]
  - PHARMACEUTICAL PRODUCT COMPLAINT [None]
  - REBOUND EFFECT [None]
